FAERS Safety Report 6134755-5 (Version None)
Quarter: 2009Q1

REPORT INFORMATION
  Report Type: 
  Country: None (occurrence: None)
  Receive Date: 20090327
  Receipt Date: 20090320
  Transmission Date: 20090719
  Serious: Yes (Hospitalization)
  Sender: FDA-Public Use
  Company Number: US-ROCHE-595050

PATIENT
  Sex: Male
  Weight: 71.7 kg

DRUGS (11)
  1. CAPECITABINE [Suspect]
     Dosage: 1 WEEK ON 1 WEEK OFF
     Route: 048
     Dates: start: 20080920, end: 20081027
  2. CAPECITABINE [Suspect]
     Route: 048
     Dates: start: 20081113
  3. CAPECITABINE [Suspect]
     Route: 048
     Dates: end: 20081218
  4. CAPECITABINE [Suspect]
     Dosage: TEMPORARILY OFF
     Route: 048
     Dates: start: 20081201
  5. BEVACIZUMAB [Suspect]
     Dosage: DOSAGE: 10 MG/KG
     Route: 042
     Dates: start: 20081021
  6. OXALIPLATIN [Suspect]
     Dosage: DOSAGE: 85 MG/M2
     Route: 042
     Dates: start: 20081007, end: 20081021
  7. OXALIPLATIN [Suspect]
     Route: 042
     Dates: start: 20090101
  8. LISINOPRIL [Concomitant]
     Indication: HYPERTENSION
     Dosage: FREQUENCY: DAILY
     Route: 048
  9. ALLOPURINOL [Concomitant]
     Indication: GOUT
     Dosage: FREQUENCY: DAILY
     Route: 048
  10. ASPIRIN [Concomitant]
     Indication: MYOCARDIAL INFARCTION
     Dosage: FREQUENCY: DAILY
     Route: 048
  11. ACIPHEX [Concomitant]
     Dosage: FREQUENCY: 20 MG
     Route: 048

REACTIONS (5)
  - ASTHENIA [None]
  - DEHYDRATION [None]
  - DIARRHOEA [None]
  - HYPOKALAEMIA [None]
  - HYPONATRAEMIA [None]
